FAERS Safety Report 4592957-3 (Version None)
Quarter: 2005Q1

REPORT INFORMATION
  Report Type: 
  Country: None (occurrence: None)
  Receive Date: 20050228
  Receipt Date: 20050223
  Transmission Date: 20050727
  Serious: Yes (Life-Threatening)
  Sender: FDA-Public Use
  Company Number: ES-GLAXOSMITHKLINE-B0373015A

PATIENT
  Age: 68 Year
  Sex: Female

DRUGS (10)
  1. FONDAPARINUX SODIUM [Suspect]
     Indication: ORTHOPEDIC PROCEDURE
     Dosage: 25MG PER DAY
     Route: 058
     Dates: start: 20040504
  2. KEFOL [Concomitant]
  3. NOLOTIL [Concomitant]
  4. RANITIDINE [Concomitant]
  5. AUGMENTIN '125' [Concomitant]
  6. NEURONTIN [Concomitant]
  7. OMEPRAZOLE [Concomitant]
  8. TARDYFERON [Concomitant]
  9. ZARATOR [Concomitant]
  10. TRAMADOL HYDROCHLORIDE [Concomitant]

REACTIONS (1)
  - MYOCARDIAL INFARCTION [None]
